FAERS Safety Report 16044355 (Version 2)
Quarter: 2019Q1

REPORT INFORMATION
  Report Type: Spontaneous
  Country: IT (occurrence: IT)
  Receive Date: 20190306
  Receipt Date: 20190308
  Transmission Date: 20190418
  Serious: Yes (Other)
  Sender: FDA-Public Use
  Company Number: PHHY2019IT045734

PATIENT
  Age: 59 Year
  Sex: Male

DRUGS (1)
  1. IRBESARTAN+HYDROCHLOROTHIAZIDE [Suspect]
     Active Substance: HYDROCHLOROTHIAZIDE\IRBESARTAN
     Indication: ESSENTIAL HYPERTENSION
     Dosage: (HYDROCHLOROTHIAZIDE 12.5 MG, IRBESARTAN 150 MG)
     Route: 065

REACTIONS (3)
  - Erythema [Recovering/Resolving]
  - Skin erosion [Recovering/Resolving]
  - Pemphigus [Recovered/Resolved]
